FAERS Safety Report 4989505-2 (Version None)
Quarter: 2006Q2

REPORT INFORMATION
  Report Type: 
  Country: None (occurrence: None)
  Receive Date: 20060502
  Receipt Date: 20060228
  Transmission Date: 20061013
  Serious: Yes (Hospitalization)
  Sender: FDA-Public Use
  Company Number: US-MERCK-0603USA00271

PATIENT
  Age: 39 Year
  Sex: Female
  Weight: 89 kg

DRUGS (7)
  1. VIOXX [Suspect]
     Indication: OSTEOARTHRITIS
     Route: 048
     Dates: start: 20010301, end: 20021126
  2. VIOXX [Suspect]
     Route: 048
     Dates: start: 20010301, end: 20021126
  3. VIOXX [Suspect]
     Indication: BACK INJURY
     Route: 048
     Dates: start: 20010301, end: 20021126
  4. VIOXX [Suspect]
     Route: 048
     Dates: start: 20010301, end: 20021126
  5. TYLENOL (CAPLET) [Concomitant]
     Route: 065
  6. IBUPROFEN [Concomitant]
     Route: 065
  7. NEURONTIN [Concomitant]
     Indication: BACK PAIN
     Route: 065

REACTIONS (32)
  - ANGINA PECTORIS [None]
  - ASTHENIA [None]
  - BACK PAIN [None]
  - BLOOD PRESSURE FLUCTUATION [None]
  - BUNDLE BRANCH BLOCK RIGHT [None]
  - C-REACTIVE PROTEIN INCREASED [None]
  - CHEST PAIN [None]
  - CONTUSION [None]
  - DIZZINESS [None]
  - FATIGUE [None]
  - HEADACHE [None]
  - HYPERHIDROSIS [None]
  - HYPERLIPIDAEMIA [None]
  - HYPERTENSION [None]
  - ISCHAEMIA [None]
  - LIPOPROTEIN (A) INCREASED [None]
  - MICROVASCULAR ANGINA [None]
  - MUSCLE SPASMS [None]
  - MUSCULOSKELETAL CHEST PAIN [None]
  - MYALGIA [None]
  - MYOCARDIAL ISCHAEMIA [None]
  - PALPITATIONS [None]
  - PRINZMETAL ANGINA [None]
  - SINUSITIS [None]
  - SLEEP DISORDER [None]
  - STRESS [None]
  - THIRST [None]
  - VASCULAR INSUFFICIENCY [None]
  - VENTRICULAR HYPOKINESIA [None]
  - VERTIGO [None]
  - VERTIGO POSITIONAL [None]
  - VITAMIN B12 DECREASED [None]
